FAERS Safety Report 4710023-0 (Version None)
Quarter: 2005Q3

REPORT INFORMATION
  Report Type: 
  Country: None (occurrence: None)
  Receive Date: 20050708
  Receipt Date: 20050628
  Transmission Date: 20060218
  Serious: Yes (Other)
  Sender: FDA-Public Use
  Company Number: PHEH2005US07346

PATIENT
  Age: 80 Year
  Sex: Male

DRUGS (4)
  1. ZOMETA [Suspect]
     Indication: MULTIPLE MYELOMA
     Dosage: 4MG QMO
     Route: 042
     Dates: start: 20030501, end: 20050601
  2. OXYCONTIN [Concomitant]
  3. PERCOCET [Concomitant]
  4. VELCADE [Concomitant]

REACTIONS (2)
  - ASEPTIC NECROSIS BONE [None]
  - PAIN IN JAW [None]
